FAERS Safety Report 4320409-4 (Version None)
Quarter: 2004Q1

REPORT INFORMATION
  Report Type: 
  Country: None (occurrence: None)
  Receive Date: 20040317
  Receipt Date: 20040302
  Transmission Date: 20041129
  Serious: Yes (Hospitalization)
  Sender: FDA-Public Use
  Company Number: 2004-06748

PATIENT
  Age: 41 Year
  Sex: Male
  Weight: 47 kg

DRUGS (3)
  1. VIREAD [Suspect]
     Indication: HIV INFECTION
     Dosage: 300 MG QD PO
     Route: 048
     Dates: start: 20020101
  2. VIDEX [Suspect]
     Indication: HIV INFECTION
     Dates: start: 20020101
  3. KALETRA [Suspect]
     Indication: HIV INFECTION
     Dates: start: 20021201

REACTIONS (7)
  - BLOOD CREATININE INCREASED [None]
  - BLOOD POTASSIUM DECREASED [None]
  - GENERAL PHYSICAL CONDITION ABNORMAL [None]
  - HEPATITIS [None]
  - LACTIC ACIDOSIS [None]
  - NAUSEA [None]
  - VOMITING [None]
